FAERS Safety Report 7132304-6 (Version None)
Quarter: 2010Q4

REPORT INFORMATION
  Report Type: 
  Country: None (occurrence: None)
  Receive Date: 20101202
  Receipt Date: 20101122
  Transmission Date: 20110411
  Serious: Yes (Hospitalization)
  Sender: FDA-Public Use
  Company Number: BR-SANOFI-AVENTIS-2010SA071330

PATIENT
  Age: 30 Year
  Sex: Female
  Weight: 72 kg

DRUGS (7)
  1. LANTUS [Suspect]
     Indication: TYPE 1 DIABETES MELLITUS
     Route: 058
     Dates: start: 20000101
  2. LANTUS [Suspect]
     Route: 058
  3. LANTUS [Suspect]
     Route: 058
  4. LANTUS [Suspect]
     Route: 058
     Dates: start: 20101122
  5. AUTOPEN 24 [Suspect]
  6. ETHINYLESTRADIOL/GESTODENE [Concomitant]
     Indication: MENSTRUAL DISORDER
     Route: 048
  7. NOVORAPID [Concomitant]
     Indication: TYPE 1 DIABETES MELLITUS
     Dosage: ACCORDING TO GLYCEMIA
     Route: 058

REACTIONS (13)
  - ASTHENIA [None]
  - DECREASED APPETITE [None]
  - DYSARTHRIA [None]
  - FEELING COLD [None]
  - FEELING HOT [None]
  - HYPERGLYCAEMIA [None]
  - HYPERHIDROSIS [None]
  - HYPOGLYCAEMIA [None]
  - INJECTION SITE PAIN [None]
  - NAUSEA [None]
  - PHARYNGITIS [None]
  - VISION BLURRED [None]
  - VOMITING [None]
